FAERS Safety Report 8137041 (Version 2)
Quarter: 2012Q4

REPORT INFORMATION
  Report Type: 
  Country: US (occurrence: US)
  Receive Date: 20110915
  Receipt Date: 20121121
  Transmission Date: 20130627
  Serious: No
  Sender: FDA-Public Use
  Company Number: US-PFIZER INC-2011212669

PATIENT
  Age: 51 Year
  Sex: Male
  Weight: 90.7 kg

DRUGS (3)
  1. LEVOXYL [Suspect]
     Indication: HYPOTHYROIDISM
     Dosage: 125 ug, 1x/day
     Route: 048
     Dates: start: 2010
  2. MECLOZINE HCL [Suspect]
     Indication: DIZZINESS
     Dosage: 125 ug, daily
     Dates: start: 2009, end: 2009
  3. BABY ASPIRIN [Concomitant]
     Dosage: 81 mg,  4-5 times a week

REACTIONS (5)
  - Fatigue [Unknown]
  - Somnolence [Unknown]
  - Dizziness [Unknown]
  - Memory impairment [Unknown]
  - Weight decreased [Unknown]
